FAERS Safety Report 5122631-6 (Version None)
Quarter: 2006Q4

REPORT INFORMATION
  Report Type: 
  Country: None (occurrence: None)
  Receive Date: 20061004
  Receipt Date: 20060908
  Transmission Date: 20070319
  Serious: No
  Sender: FDA-Public Use
  Company Number: PHFR2006GB02781

PATIENT
  Sex: Female

DRUGS (1)
  1. BACLOFEN [Suspect]
     Indication: MUSCLE SPASTICITY

REACTIONS (3)
  - CATHETER PLACEMENT [None]
  - PH URINE INCREASED [None]
  - URINARY TRACT INFECTION [None]
